FAERS Safety Report 9696740 (Version 1)
Quarter: 2013Q4

REPORT INFORMATION
  Report Type: Spontaneous
  Country: US (occurrence: US)
  Receive Date: 20131119
  Receipt Date: 20131119
  Transmission Date: 20140711
  Serious: No
  Sender: FDA-Public Use
  Company Number: US-GILEAD-2007-0014413

PATIENT
  Sex: Female
  Weight: 73.94 kg

DRUGS (17)
  1. LETAIRIS [Suspect]
     Indication: PULMONARY ARTERIAL HYPERTENSION
     Route: 048
  2. FOSINOPRIL [Concomitant]
     Route: 048
  3. SINGULAIR [Concomitant]
     Route: 048
  4. LASIX [Concomitant]
     Route: 048
  5. MELOXICAM [Concomitant]
     Route: 048
  6. COUMADIN [Concomitant]
     Route: 048
  7. ZYRTEC [Concomitant]
     Route: 048
  8. GLUCOPHAGE [Concomitant]
     Route: 048
  9. NIFEDICAL [Concomitant]
     Route: 048
  10. NEXIUM [Concomitant]
     Route: 048
  11. ALLOPURINOL [Concomitant]
     Route: 048
  12. OMEGA 3 [Concomitant]
     Route: 048
  13. DIGITEK [Concomitant]
     Route: 048
  14. LEVOXYL [Concomitant]
     Route: 048
  15. MULTIVITAMIN [Concomitant]
     Route: 048
  16. POTASSIUM CHLORIDE [Concomitant]
     Route: 048
  17. REVATIO [Concomitant]
     Route: 048

REACTIONS (1)
  - Myalgia [Unknown]
